FAERS Safety Report 14184028 (Version 2)
Quarter: 2018Q2

REPORT INFORMATION
  Report Type: Spontaneous
  Country: US (occurrence: US)
  Receive Date: 20171113
  Receipt Date: 20180601
  Transmission Date: 20180711
  Serious: No
  Sender: FDA-Public Use
  Company Number: US-ASTRAZENECA-2017SF13545

PATIENT
  Age: 972 Month
  Sex: Female
  Weight: 130 kg

DRUGS (2)
  1. ALBUTEROL. [Concomitant]
     Active Substance: ALBUTEROL
     Indication: CHRONIC OBSTRUCTIVE PULMONARY DISEASE
     Dosage: AS REQUIRED
     Route: 055
  2. SYMBICORT [Suspect]
     Active Substance: BUDESONIDE\FORMOTEROL FUMARATE DIHYDRATE
     Indication: CHRONIC OBSTRUCTIVE PULMONARY DISEASE
     Dosage: 160MCG OVER 4.5MCG 2 INHALATIONS EVERY 12 HOURS
     Route: 055

REACTIONS (7)
  - Eye disorder [Unknown]
  - Product quality issue [Unknown]
  - Malaise [Unknown]
  - Hiatus hernia [Unknown]
  - Intentional dose omission [Recovered/Resolved]
  - Intentional product misuse [Recovered/Resolved]
  - Cough [Recovered/Resolved]

NARRATIVE: CASE EVENT DATE: 201710
